FAERS Safety Report 5786123-3 (Version None)
Quarter: 2008Q2

REPORT INFORMATION
  Report Type: 
  Country: None (occurrence: None)
  Receive Date: 20080624
  Receipt Date: 20080618
  Transmission Date: 20081010
  Serious: Yes (Other)
  Sender: FDA-Public Use
  Company Number: JP-ASTRAZENECA-2008AP04691

PATIENT
  Age: 74 Year
  Sex: Female

DRUGS (9)
  1. ARIMIDEX [Suspect]
     Indication: BREAST CANCER
     Route: 048
     Dates: start: 20080529, end: 20080613
  2. HERCEPTIN [Suspect]
     Indication: BREAST CANCER
     Dosage: DOSE UNKNOWN
     Route: 041
     Dates: start: 20080603, end: 20080613
  3. ZOMETA [Concomitant]
     Dosage: DOSE UNKNOWN
     Route: 041
     Dates: start: 20080522
  4. NORVASC [Concomitant]
     Route: 048
     Dates: start: 20080501, end: 20080613
  5. BLOPRESS [Concomitant]
     Route: 048
     Dates: start: 20080501, end: 20080613
  6. SELENICA-R [Concomitant]
     Dosage: DOSE UNKNOWN
     Route: 048
     Dates: start: 20080422, end: 20080613
  7. FAMOTIDINE [Concomitant]
     Dosage: 40 MG/DAY
     Route: 048
     Dates: start: 20080422, end: 20080613
  8. LOXONIN [Concomitant]
     Dosage: DOSE UNKNOWN
     Route: 048
     Dates: start: 20080421
  9. MUCOSTA [Concomitant]
     Dosage: DOSE UNKNOWN
     Route: 048
     Dates: start: 20080519

REACTIONS (1)
  - WHITE BLOOD CELL COUNT DECREASED [None]
